FAERS Safety Report 13915056 (Version 1)
Quarter: 2017Q3

REPORT INFORMATION
  Report Type: Spontaneous
  Country: US (occurrence: None)
  Receive Date: 20170827
  Receipt Date: 20170827
  Transmission Date: 20171127
  Serious: Yes (Other)
  Sender: FDA-Public Use
  Company Number: None

PATIENT
  Age: 54 Year
  Sex: Female
  Weight: 133 kg

DRUGS (1)
  1. ZEPATIER [Suspect]
     Active Substance: ELBASVIR\GRAZOPREVIR
     Route: 048
     Dates: start: 20170428, end: 20170721

REACTIONS (3)
  - Lung neoplasm malignant [None]
  - Pulmonary mass [None]
  - Cerebrovascular accident [None]

NARRATIVE: CASE EVENT DATE: 20170811
